FAERS Safety Report 5119015-3 (Version None)
Quarter: 2006Q3

REPORT INFORMATION
  Report Type: 
  Country: None (occurrence: None)
  Receive Date: 20060927
  Receipt Date: 20060922
  Transmission Date: 20061208
  Serious: Yes (Other)
  Sender: FDA-Public Use
  Company Number: 224894

PATIENT
  Age: 9 Year
  Sex: Female
  Weight: 28.1 kg

DRUGS (18)
  1. NUTROPIN AQ [Suspect]
     Indication: HYPOPITUITARISM
     Dosage: 1.1 ML, QD, SUBCUTANEOUS
     Route: 058
     Dates: start: 19970701
  2. KLONOPIN [Concomitant]
  3. ZONEGRAN (ZONISAMIDE) [Concomitant]
  4. SYNTHROID [Concomitant]
  5. DDAVP (DESMOPRESSIN ACETATE) [Concomitant]
  6. LUPRON [Concomitant]
  7. ULTRACET (ACETAMINOPHEN, TRAMADOL HYDROCHLORIDE) [Concomitant]
  8. ZANTAC [Concomitant]
  9. CHILDREN'S MULTIVITAMINS (MULTIVITAMINS NOS) [Concomitant]
  10. CALCIUM WITH MINERALS (CALCIUM NOS, MINERALS NOS) [Concomitant]
  11. PROMOD (AMINO ACIDS) [Concomitant]
  12. IRON (IRON NOS) [Concomitant]
  13. SALT (SODIUM CHLORIDE) [Concomitant]
  14. MIRALAX [Concomitant]
  15. PEDIASURE (ENTERAL ALIMENTATION) [Concomitant]
  16. ALBUTEROL (ALBUTEROL/ALBUTEROL SULFATE) [Concomitant]
  17. BACTRIM [Concomitant]
  18. ANTICONVULSANTS [Concomitant]

REACTIONS (2)
  - CONVULSION [None]
  - GENERAL PHYSICAL HEALTH DETERIORATION [None]
